FAERS Safety Report 15478157 (Version 1)
Quarter: 2018Q4

REPORT INFORMATION
  Report Type: Spontaneous
  Country: US (occurrence: US)
  Receive Date: 20181002
  Receipt Date: 20181002
  Transmission Date: 20190205
  Serious: Yes (Other)
  Sender: FDA-Public Use
  Company Number: None

PATIENT
  Age: 63 Year
  Sex: Female
  Weight: 61.2 kg

DRUGS (3)
  1. PREDNISOLONE ACETATE 1 % ALLERGAN [Suspect]
     Active Substance: PREDNISOLONE ACETATE
     Indication: POSTOPERATIVE CARE
     Dosage: ?          QUANTITY:1 GTT DROP(S);?
     Route: 047
  2. PREDNISOLONE ACETATE 1 % ALLERGAN [Suspect]
     Active Substance: PREDNISOLONE ACETATE
     Indication: CATARACT OPERATION
     Dosage: ?          QUANTITY:1 GTT DROP(S);?
     Route: 047
  3. ULTRAM [Concomitant]
     Active Substance: TRAMADOL HYDROCHLORIDE

REACTIONS (6)
  - Headache [None]
  - Dyspnoea [None]
  - Treatment noncompliance [None]
  - Muscle tightness [None]
  - Agitation [None]
  - Nausea [None]

NARRATIVE: CASE EVENT DATE: 20180926
